FAERS Safety Report 24329418 (Version 2)
Quarter: 2025Q3

REPORT INFORMATION
  Report Type: Spontaneous
  Country: CA (occurrence: CA)
  Receive Date: 20240917
  Receipt Date: 20250715
  Transmission Date: 20251021
  Serious: Yes (Other)
  Sender: MYLAN
  Company Number: CA-MYLANLABS-2024M1083820

PATIENT
  Age: 53 Year
  Sex: Female
  Weight: 53 kg

DRUGS (75)
  1. LIPITOR [Suspect]
     Active Substance: ATORVASTATIN CALCIUM
     Indication: Hypercholesterolaemia
  2. ACTEMRA [Suspect]
     Active Substance: TOCILIZUMAB
     Indication: Rheumatoid arthritis
     Dosage: 366 MILLIGRAM, MONTHLY (1 EVERY 1 MONTHS)
  3. ACTEMRA [Suspect]
     Active Substance: TOCILIZUMAB
  4. ACTEMRA [Suspect]
     Active Substance: TOCILIZUMAB
     Dosage: 220 MILLIGRAM, MONTHLY (1 EVERY 1 MONTHS)
  5. ACTEMRA [Suspect]
     Active Substance: TOCILIZUMAB
     Dosage: 496 MILLIGRAM, MONTHLY (1 EVERY 1 MONTHS)
  6. ACTEMRA [Suspect]
     Active Substance: TOCILIZUMAB
     Dosage: 366 MILLIGRAM, MONTHLY (1 EVERY 1 MONTHS)
  7. ACTEMRA [Suspect]
     Active Substance: TOCILIZUMAB
     Dosage: 456 MILLIGRAM, MONTHLY (1 EVERY 1 MONTHS)
  8. ACTEMRA [Suspect]
     Active Substance: TOCILIZUMAB
     Dosage: 448 MILLIGRAM, MONTHLY (1 EVERY 1 MONTHS)
  9. ACTEMRA [Suspect]
     Active Substance: TOCILIZUMAB
     Dosage: 420 MILLIGRAM, MONTHLY (1 EVERY 1 MONTHS)
  10. ACTEMRA [Suspect]
     Active Substance: TOCILIZUMAB
     Dosage: 440 MILLIGRAM, MONTHLY (1 EVERY 1 MONTHS)
  11. ACTEMRA [Suspect]
     Active Substance: TOCILIZUMAB
     Dosage: 336 MILLIGRAM, MONTHLY (1 EVERY 1 MONTHS)
  12. ACTEMRA [Suspect]
     Active Substance: TOCILIZUMAB
     Dosage: 464 MILLIGRAM, MONTHLY (1 EVERY 1 MONTHS)
  13. ACTEMRA [Suspect]
     Active Substance: TOCILIZUMAB
     Dosage: 222 MILLIGRAM, MONTHLY (1 EVERY 1 MONTHS)
  14. ACTEMRA [Suspect]
     Active Substance: TOCILIZUMAB
  15. ACTEMRA [Suspect]
     Active Substance: TOCILIZUMAB
     Indication: Rheumatoid arthritis
  16. ACTEMRA [Suspect]
     Active Substance: TOCILIZUMAB
  17. ACTEMRA [Suspect]
     Active Substance: TOCILIZUMAB
  18. ACTEMRA [Suspect]
     Active Substance: TOCILIZUMAB
     Indication: Rheumatoid arthritis
     Dosage: 366 MILLIGRAM, MONTHLY (1 EVERY 1 MONTHS)
  19. ACTEMRA [Suspect]
     Active Substance: TOCILIZUMAB
  20. ACTEMRA [Suspect]
     Active Substance: TOCILIZUMAB
  21. ACTEMRA [Suspect]
     Active Substance: TOCILIZUMAB
  22. ACTEMRA [Suspect]
     Active Substance: TOCILIZUMAB
     Dosage: 244 MILLIGRAM, MONTHLY (1 EVERY 1 MONTHS)
  23. ACTEMRA [Suspect]
     Active Substance: TOCILIZUMAB
  24. ARAVA [Suspect]
     Active Substance: LEFLUNOMIDE
     Indication: Rheumatoid arthritis
  25. METHOTREXATE [Suspect]
     Active Substance: METHOTREXATE
     Indication: Product used for unknown indication
  26. ORENCIA [Suspect]
     Active Substance: ABATACEPT
     Indication: Product used for unknown indication
  27. ROSUVASTATIN CALCIUM [Suspect]
     Active Substance: ROSUVASTATIN CALCIUM
     Indication: Blood cholesterol abnormal
  28. SULFASALAZINE [Suspect]
     Active Substance: SULFASALAZINE
     Indication: Product used for unknown indication
  29. SIMVASTATIN [Suspect]
     Active Substance: SIMVASTATIN
     Indication: Blood cholesterol increased
  30. ZOCOR [Suspect]
     Active Substance: SIMVASTATIN
     Indication: Blood cholesterol increased
  31. EBASTINE [Concomitant]
     Active Substance: EBASTINE
  32. BETAMETHASONE VALERATE [Concomitant]
     Active Substance: BETAMETHASONE VALERATE
  33. BETAMETHASONE VALERATE [Concomitant]
     Active Substance: BETAMETHASONE VALERATE
  34. CLOTRIMAZOLE [Concomitant]
     Active Substance: CLOTRIMAZOLE
  35. DESLORATADINE [Concomitant]
     Active Substance: DESLORATADINE
  36. EBASTINE [Concomitant]
     Active Substance: EBASTINE
  37. ESOMEPRAZOLE [Concomitant]
     Active Substance: ESOMEPRAZOLE
     Dosage: 20 MILLIGRAM, BID (2 EVERY 1 DAYS)
  38. ESOMEPRAZOLE [Concomitant]
     Active Substance: ESOMEPRAZOLE
  39. ESOMEPRAZOLE [Concomitant]
     Active Substance: ESOMEPRAZOLE
  40. EZETIMIBE [Concomitant]
     Active Substance: EZETIMIBE
  41. EZETIMIBE [Concomitant]
     Active Substance: EZETIMIBE
  42. LEFLUNOMIDE [Concomitant]
     Active Substance: LEFLUNOMIDE
  43. NIZORAL [Concomitant]
     Active Substance: KETOCONAZOLE
  44. NIZORAL [Concomitant]
     Active Substance: KETOCONAZOLE
     Dosage: 2 PERCENT, QD (1 EVERY 1 DAYS)
  45. NIZORAL [Concomitant]
     Active Substance: KETOCONAZOLE
  46. NORITATE [Concomitant]
     Active Substance: METRONIDAZOLE
  47. OMEPRAZOLE [Concomitant]
     Active Substance: OMEPRAZOLE
  48. PAROXETINE HYDROCHLORIDE [Concomitant]
     Active Substance: PAROXETINE HYDROCHLORIDE
  49. PAROXETINE HYDROCHLORIDE [Concomitant]
     Active Substance: PAROXETINE HYDROCHLORIDE
     Dosage: 30 MILLIGRAM, QD (1 EVERY 1 DAYS)
  50. PAROXETINE HYDROCHLORIDE [Concomitant]
     Active Substance: PAROXETINE HYDROCHLORIDE
  51. PAROXETINE HYDROCHLORIDE [Concomitant]
     Active Substance: PAROXETINE HYDROCHLORIDE
  52. RANITIDINE [Concomitant]
     Active Substance: RANITIDINE
  53. RESTASIS [Concomitant]
     Active Substance: CYCLOSPORINE
     Dosage: UNK, QID (4 EVERY 1 DAYS)
  54. RESTASIS [Concomitant]
     Active Substance: CYCLOSPORINE
  55. RESTASIS [Concomitant]
     Active Substance: CYCLOSPORINE
     Dosage: 0.05 PERCENT, QD (1 EVERY 1 DAYS)
  56. RESTASIS [Concomitant]
     Active Substance: CYCLOSPORINE
  57. SIMPONI [Concomitant]
     Active Substance: GOLIMUMAB
     Indication: Rheumatoid arthritis
  58. SIMPONI [Concomitant]
     Active Substance: GOLIMUMAB
     Indication: Rheumatoid arthritis
  59. VENTOLIN [Concomitant]
     Active Substance: ALBUTEROL SULFATE
  60. VENTOLIN [Concomitant]
     Active Substance: ALBUTEROL SULFATE
  61. VITAMIN D3 [Concomitant]
     Active Substance: CHOLECALCIFEROL
     Dosage: 25 MILLIGRAM, QD (1 EVERY 1 DAYS)
  62. VITAMIN D3 [Concomitant]
     Active Substance: CHOLECALCIFEROL
  63. VITAMIN D3 [Concomitant]
     Active Substance: CHOLECALCIFEROL
  64. ZANTAC [Concomitant]
     Active Substance: RANITIDINE HYDROCHLORIDE
     Dosage: 300 MILLIGRAM, QD (1 EVERY 1 DAYS)
  65. ALIGN [Concomitant]
     Active Substance: BIFIDOBACTERIUM LONGUM SUBSP. INFANTIS
  66. BETADERM [Concomitant]
     Active Substance: BETAMETHASONE VALERATE
  67. CANNABIDIOL [Concomitant]
     Active Substance: CANNABIDIOL
  68. EZETIMIBE [Concomitant]
     Active Substance: EZETIMIBE
  69. FENOFIBRATE [Concomitant]
     Active Substance: FENOFIBRATE
  70. FENOFIBRATE [Concomitant]
     Active Substance: FENOFIBRATE
     Dosage: 200 MILLIGRAM, QD (1 EVERY 1 DAYS)
  71. LORAZEPAM [Concomitant]
     Active Substance: LORAZEPAM
  72. NIZORAL [Concomitant]
     Active Substance: KETOCONAZOLE
     Dosage: 2 PERCENT, QD (1 EVERY 1 DAYS)
  73. RESTASIS [Concomitant]
     Active Substance: CYCLOSPORINE
  74. RESTASIS [Concomitant]
     Active Substance: CYCLOSPORINE
  75. VITAMIN D3 [Concomitant]
     Active Substance: CHOLECALCIFEROL
     Dosage: 25 MILLIGRAM, QD (1 EVERY 1 DAYS)

REACTIONS (57)
  - Abdominal pain [Not Recovered/Not Resolved]
  - Abdominal pain upper [Not Recovered/Not Resolved]
  - Arthrodesis [Not Recovered/Not Resolved]
  - Arthropathy [Not Recovered/Not Resolved]
  - Asthenia [Not Recovered/Not Resolved]
  - Blood cholesterol increased [Not Recovered/Not Resolved]
  - C-reactive protein increased [Not Recovered/Not Resolved]
  - Contusion [Not Recovered/Not Resolved]
  - Dyslipidaemia [Not Recovered/Not Resolved]
  - Endocrine ophthalmopathy [Not Recovered/Not Resolved]
  - Eye infection [Not Recovered/Not Resolved]
  - Eyelid disorder [Not Recovered/Not Resolved]
  - Feeding disorder [Not Recovered/Not Resolved]
  - Foot deformity [Not Recovered/Not Resolved]
  - Gait inability [Not Recovered/Not Resolved]
  - Gastrointestinal disorder [Not Recovered/Not Resolved]
  - Haematochezia [Not Recovered/Not Resolved]
  - Haemorrhoids [Not Recovered/Not Resolved]
  - Headache [Not Recovered/Not Resolved]
  - Hypercholesterolaemia [Not Recovered/Not Resolved]
  - Mean cell haemoglobin increased [Not Recovered/Not Resolved]
  - Nasal ulcer [Not Recovered/Not Resolved]
  - Osteoarthritis [Not Recovered/Not Resolved]
  - Pain [Not Recovered/Not Resolved]
  - Pelvic pain [Not Recovered/Not Resolved]
  - Pruritus [Not Recovered/Not Resolved]
  - Psoriasis [Not Recovered/Not Resolved]
  - Rectal haemorrhage [Not Recovered/Not Resolved]
  - Skin disorder [Not Recovered/Not Resolved]
  - Skin laceration [Not Recovered/Not Resolved]
  - Skin ulcer [Not Recovered/Not Resolved]
  - Swelling of eyelid [Not Recovered/Not Resolved]
  - Synovial cyst [Not Recovered/Not Resolved]
  - Synovitis [Not Recovered/Not Resolved]
  - Tenosynovitis stenosans [Not Recovered/Not Resolved]
  - Toxic shock syndrome [Not Recovered/Not Resolved]
  - Vitamin D decreased [Not Recovered/Not Resolved]
  - Vomiting [Not Recovered/Not Resolved]
  - Weight decreased [Not Recovered/Not Resolved]
  - Mental disorder [Not Recovered/Not Resolved]
  - Emotional disorder [Not Recovered/Not Resolved]
  - Crying [Not Recovered/Not Resolved]
  - Pain in extremity [Not Recovered/Not Resolved]
  - Nausea [Not Recovered/Not Resolved]
  - Myalgia [Not Recovered/Not Resolved]
  - Muscle spasms [Not Recovered/Not Resolved]
  - Joint swelling [Not Recovered/Not Resolved]
  - Hypersensitivity [Not Recovered/Not Resolved]
  - Flatulence [Not Recovered/Not Resolved]
  - Fatigue [Not Recovered/Not Resolved]
  - Dyspepsia [Not Recovered/Not Resolved]
  - Peripheral swelling [Not Recovered/Not Resolved]
  - Diarrhoea [Not Recovered/Not Resolved]
  - Rash [Not Recovered/Not Resolved]
  - Back pain [Not Recovered/Not Resolved]
  - Weight increased [Not Recovered/Not Resolved]
  - Treatment failure [Not Recovered/Not Resolved]
